FAERS Safety Report 15269838 (Version 1)
Quarter: 2018Q3

REPORT INFORMATION
  Report Type: Spontaneous
  Country: US (occurrence: US)
  Receive Date: 20180813
  Receipt Date: 20180813
  Transmission Date: 20181010
  Serious: Yes (Death)
  Sender: FDA-Public Use
  Company Number: US-MYLANLABS-2018M1061056

PATIENT
  Sex: Male

DRUGS (2)
  1. FENTANYL TRANSDERMAL SYSTEM [Suspect]
     Active Substance: FENTANYL
     Indication: PAIN
     Dosage: 50 MG, QH
     Route: 062
     Dates: start: 2015, end: 201603
  2. FENTANYL TRANSDERMAL SYSTEM [Suspect]
     Active Substance: FENTANYL
     Dosage: 50 MG, QH
     Route: 062
     Dates: start: 201608

REACTIONS (5)
  - Drug effect increased [Fatal]
  - Skin reaction [Fatal]
  - Medication monitoring error [Fatal]
  - Injury [Fatal]
  - Product quality issue [Fatal]

NARRATIVE: CASE EVENT DATE: 201603
